FAERS Safety Report 5703010-7 (Version None)
Quarter: 2008Q2

REPORT INFORMATION
  Report Type: 
  Country: None (occurrence: None)
  Receive Date: 20080408
  Receipt Date: 20080404
  Transmission Date: 20081010
  Serious: Yes (Other)
  Sender: FDA-Public Use
  Company Number: 2007SP020528

PATIENT
  Age: 73 Year
  Sex: Female
  Weight: 56 kg

DRUGS (16)
  1. TEMODAL [Suspect]
     Indication: ANAPLASTIC ASTROCYTOMA
     Dosage: 75 MG/M2;QD;PO
     Route: 048
     Dates: start: 20061115, end: 20061214
  2. SYLLABLE [Concomitant]
  3. DASEN [Concomitant]
  4. KYTRIL [Concomitant]
  5. HYSERENIN [Concomitant]
  6. PREDONINE [Concomitant]
  7. PERSANTINE [Concomitant]
  8. SIGMART [Concomitant]
  9. LOCHOL [Concomitant]
  10. LUVOX [Concomitant]
  11. MELEX [Concomitant]
  12. ASPIRIN [Concomitant]
  13. CIBENOL [Concomitant]
  14. ACINON [Concomitant]
  15. PRIMPERAN INJ [Concomitant]
  16. SELBEX [Concomitant]

REACTIONS (4)
  - BREAST CANCER FEMALE [None]
  - MALAISE [None]
  - METASTASES TO BREAST [None]
  - NAUSEA [None]
